FAERS Safety Report 11827229 (Version 1)
Quarter: 2015Q4

REPORT INFORMATION
  Report Type: Spontaneous
  Country: US (occurrence: US)
  Receive Date: 20151211
  Receipt Date: 20151211
  Transmission Date: 20160305
  Serious: No
  Sender: FDA-Public Use
  Company Number: US-ASTELLAS-2015US043007

PATIENT
  Age: 65 Year
  Sex: Male

DRUGS (1)
  1. CRESEMBA [Suspect]
     Active Substance: ISAVUCONAZONIUM SULFATE
     Indication: FUNGAL INFECTION
     Dosage: 2 DF, ONCE DAILY (TWO 186MG CAPSULES PER 24 HOURS)
     Route: 048
     Dates: start: 20151111

REACTIONS (1)
  - Inappropriate schedule of drug administration [Recovered/Resolved]

NARRATIVE: CASE EVENT DATE: 20151111
